FAERS Safety Report 14423825 (Version 2)
Quarter: 2018Q3

REPORT INFORMATION
  Report Type: Report from Study
  Country: DE (occurrence: DE)
  Receive Date: 20180123
  Receipt Date: 20180706
  Transmission Date: 20181010
  Serious: Yes (Hospitalization, Other)
  Sender: FDA-Public Use
  Company Number: DE-ACTELION-A-CH2017-161243

PATIENT
  Age: 63 Year
  Sex: Female

DRUGS (28)
  1. ALDACTONE [Concomitant]
     Active Substance: SPIRONOLACTONE
     Dosage: 75 MG, QD
     Route: 048
  2. OXYGEN. [Concomitant]
     Active Substance: OXYGEN
  3. OXAZEPAM. [Concomitant]
     Active Substance: OXAZEPAM
     Dosage: 10 MG, PRN
     Route: 048
  4. UPTRAVI [Suspect]
     Active Substance: SELEXIPAG
     Dosage: 1000 ?G, QD
     Route: 048
     Dates: start: 20171028
  5. ALDACTONE [Concomitant]
     Active Substance: SPIRONOLACTONE
     Dosage: 50 MG, OD
     Route: 048
  6. BECLOMETHASONE [Concomitant]
     Active Substance: BECLOMETHASONE
     Dosage: 200 ?G, BID
     Route: 055
  7. BECLOMETHASONE [Concomitant]
     Active Substance: BECLOMETHASONE
     Dosage: 0.1 MG, UNK
  8. UPTRAVI [Suspect]
     Active Substance: SELEXIPAG
     Dosage: 200 ?G, QD
     Route: 048
     Dates: start: 20170907
  9. UPTRAVI [Suspect]
     Active Substance: SELEXIPAG
     Dosage: 400 ?G, QD
     Route: 048
     Dates: start: 20170924
  10. UPTRAVI [Suspect]
     Active Substance: SELEXIPAG
     Dosage: 600 ?G, QD
     Route: 048
     Dates: start: 20171001
  11. OPSUMIT [Concomitant]
     Active Substance: MACITENTAN
     Indication: PULMONARY ARTERIAL HYPERTENSION
     Dosage: 10 MG, QD
     Route: 048
  12. BERODUAL LS [Concomitant]
     Active Substance: FENOTEROL HYDROBROMIDE\IPRATROPIUM BROMIDE
     Dosage: 0.5 MG, PRN
     Route: 055
  13. UPTRAVI [Suspect]
     Active Substance: SELEXIPAG
     Dosage: 800 ?G, QD
     Route: 048
     Dates: start: 20171104
  14. METOPROLOLSUCCINAAT [Concomitant]
     Active Substance: METOPROLOL SUCCINATE
     Dosage: 5 MG, BID
  15. NATRILIX [Concomitant]
     Active Substance: INDAPAMIDE
     Dosage: 1.5 MG, OD
  16. SPIOLTO RESPIMAT [Concomitant]
     Active Substance: OLODATEROL HYDROCHLORIDE\TIOTROPIUM BROMIDE MONOHYDRATE
     Dosage: 2.5 ?G, QD
     Route: 055
  17. KALINOR?BRAUSETABLETTEN [Concomitant]
     Active Substance: POTASSIUM CARBONATE\POTASSIUM CITRATE
     Dosage: 40 MMOL, BID
     Route: 048
  18. PREDNISON [Concomitant]
     Active Substance: PREDNISONE
     Dosage: 5 MG, UNK
     Route: 048
  19. METOPROLOLSUCCINAAT [Concomitant]
     Active Substance: METOPROLOL SUCCINATE
     Dosage: 5 MG, QD
  20. BELOC?ZOK COMP [Concomitant]
     Active Substance: HYDROCHLOROTHIAZIDE\METOPROLOL SUCCINATE
     Dosage: 118.7 MG, QD
     Route: 048
  21. TRACLEER [Concomitant]
     Active Substance: BOSENTAN
     Indication: PULMONARY ARTERIAL HYPERTENSION
     Dosage: 125 MG, QD
     Route: 048
  22. TORASEMIDE [Concomitant]
     Active Substance: TORSEMIDE
     Dosage: 50 MG, QD
     Route: 048
  23. COLCHICUM [Concomitant]
     Active Substance: COLCHICINE
     Dosage: 0.5 UNK, BID
     Route: 048
     Dates: start: 20171112
  24. UPTRAVI [Suspect]
     Active Substance: SELEXIPAG
     Indication: PULMONARY ARTERIAL HYPERTENSION
     Dosage: 800 ?G, QD
     Route: 048
     Dates: start: 20171014
  25. REVATIO [Concomitant]
     Active Substance: SILDENAFIL CITRATE
     Dosage: 20 MG, BID
     Route: 048
     Dates: start: 200703
  26. DAXAS [Concomitant]
     Active Substance: ROFLUMILAST
     Dosage: 500 MG, QD
     Route: 048
     Dates: start: 201204
  27. PANTOPRAZOL [Concomitant]
     Active Substance: PANTOPRAZOLE SODIUM
     Dosage: 40 MG, QD
     Route: 048
  28. MARCUMAR [Concomitant]
     Active Substance: PHENPROCOUMON
     Dosage: 1 MG, QD
     Route: 048

REACTIONS (16)
  - Dyspnoea [Unknown]
  - Hypokalaemia [Unknown]
  - Occult blood positive [Unknown]
  - Gastritis [Unknown]
  - Respiratory failure [Unknown]
  - Headache [Unknown]
  - Disease progression [Recovered/Resolved]
  - Chronic obstructive pulmonary disease [Unknown]
  - Pericardial effusion [Recovered/Resolved]
  - Tachycardia [Unknown]
  - Overdose [Unknown]
  - Cardiac tamponade [Recovered/Resolved]
  - Pericardial drainage [Unknown]
  - Right ventricular failure [Recovered/Resolved]
  - Diarrhoea [Unknown]
  - Pain in jaw [Unknown]

NARRATIVE: CASE EVENT DATE: 201710
